FAERS Safety Report 7913775 (Version 2)
Quarter: 2014Q2

REPORT INFORMATION
  Report Type: Spontaneous
  Country: CA (occurrence: CA)
  Receive Date: 20110425
  Receipt Date: 20140627
  Transmission Date: 20141212
  Serious: Yes (Death)
  Sender: FDA-Public Use
  Company Number: CA-ASTRAZENECA-2011SE22391

PATIENT
  Age: 85 Year
  Sex: Male

DRUGS (2)
  1. SEROQUEL [Suspect]
     Indication: INSOMNIA
     Route: 048
  2. SEROQUEL [Suspect]
     Indication: INSOMNIA
     Route: 048

REACTIONS (3)
  - Myocardial infarction [Fatal]
  - Diarrhoea [Unknown]
  - Nausea [Unknown]
